FAERS Safety Report 20436823 (Version 11)
Quarter: 2022Q4

REPORT INFORMATION
  Report Type: Report from Study
  Country: US (occurrence: None)
  Receive Date: 20220207
  Receipt Date: 20221021
  Transmission Date: 20230112
  Serious: Yes (Other)
  Sender: FDA-Public Use
  Company Number: US-ROCHE-3017190

PATIENT
  Age: 71 Year
  Sex: Male
  Weight: 83 kg

DRUGS (32)
  1. RANIBIZUMAB [Suspect]
     Active Substance: RANIBIZUMAB
     Indication: Diabetic retinal oedema
     Dosage: DOSE OF STUDY DRUG FIRST ADMINISTERED 10 MG/ML?START DATE OF MOST RECENT DOSE(100 MG/ML) OF STUDY DR
     Route: 050
     Dates: start: 20210126
  2. RANIBIZUMAB [Suspect]
     Active Substance: RANIBIZUMAB
  3. RANIBIZUMAB [Suspect]
     Active Substance: RANIBIZUMAB
  4. RANIBIZUMAB [Suspect]
     Active Substance: RANIBIZUMAB
  5. RANIBIZUMAB [Suspect]
     Active Substance: RANIBIZUMAB
     Dates: start: 20211101
  6. RANIBIZUMAB [Suspect]
     Active Substance: RANIBIZUMAB
  7. RANIBIZUMAB [Concomitant]
     Active Substance: RANIBIZUMAB
     Dosage: START DATE OF MOST RECENT DOSE (6 MG/ML) OF STUDY DRUG PRIOR TO AE AND SAE WAS 29-NOV-2021
     Route: 050
     Dates: start: 20210126
  8. GLIPIZIDE [Concomitant]
     Active Substance: GLIPIZIDE
     Indication: Type 2 diabetes mellitus
     Dosage: DOSE: 5 MG/ML
     Route: 048
     Dates: start: 2001
  9. METFORMIN [Concomitant]
     Active Substance: METFORMIN HYDROCHLORIDE
     Indication: Type 2 diabetes mellitus
     Dosage: 1000 MG/ML
     Route: 048
     Dates: start: 2001
  10. JARDIANCE [Concomitant]
     Active Substance: EMPAGLIFLOZIN
     Indication: Type 2 diabetes mellitus
     Dosage: DOSE: 10 MG/ML
     Route: 048
     Dates: start: 2001
  11. ENALAPRIL [Concomitant]
     Active Substance: ENALAPRIL
     Indication: Hypertension
     Dosage: DOSE: 5 MG/ML
     Route: 048
     Dates: start: 2016
  12. CRESTOR [Concomitant]
     Active Substance: ROSUVASTATIN CALCIUM
     Indication: Hyperlipidaemia
     Dosage: DOSE: 5 MG/ML
     Route: 048
     Dates: start: 2016
  13. COMBIGAN [Concomitant]
     Active Substance: BRIMONIDINE TARTRATE\TIMOLOL MALEATE
     Route: 047
     Dates: start: 20210528
  14. NORCO [Concomitant]
     Active Substance: ACETAMINOPHEN\HYDROCODONE BITARTRATE
     Indication: Parotitis
     Dosage: 325 MG/ML
     Route: 048
     Dates: start: 20210820
  15. PREDNISONE [Concomitant]
     Active Substance: PREDNISONE
     Indication: Parotitis
     Route: 048
     Dates: start: 20211122, end: 20220120
  16. PREDNISONE [Concomitant]
     Active Substance: PREDNISONE
     Route: 048
     Dates: start: 20220120
  17. PREDNISONE [Concomitant]
     Active Substance: PREDNISONE
     Route: 048
     Dates: start: 20220822, end: 20220906
  18. AZITHROMYCIN;SODIUM CHLORIDE [Concomitant]
     Indication: COVID-19
     Route: 042
     Dates: start: 20220104, end: 20220104
  19. SODIUM CHLORIDE [Concomitant]
     Active Substance: SODIUM CHLORIDE
     Indication: COVID-19
     Route: 042
     Dates: start: 20220104, end: 20220104
  20. DEXAMETHASONE SODIUM PHOSPHATE [Concomitant]
     Active Substance: DEXAMETHASONE SODIUM PHOSPHATE
     Indication: COVID-19
     Dosage: 6 MG/ML
     Route: 042
     Dates: start: 20220104, end: 20220104
  21. REMDESIVIR [Concomitant]
     Active Substance: REMDESIVIR
     Indication: COVID-19
     Dosage: 100 MG/ML
     Route: 042
     Dates: start: 20220105, end: 20220120
  22. XARELTO [Concomitant]
     Active Substance: RIVAROXABAN
     Indication: COVID-19
     Dosage: 100 MG/ML
     Route: 042
     Dates: start: 20220120, end: 20220130
  23. BACTRIM [Concomitant]
     Active Substance: SULFAMETHOXAZOLE\TRIMETHOPRIM
     Indication: COVID-19
     Dosage: 800 MG/ML
     Route: 048
     Dates: start: 20220120, end: 20220219
  24. ALBUTEROL\IPRATROPIUM [Concomitant]
     Active Substance: ALBUTEROL\IPRATROPIUM
     Indication: COVID-19
     Route: 048
     Dates: start: 20220120
  25. BUDESONIDE [Concomitant]
     Active Substance: BUDESONIDE
     Indication: COVID-19
     Dosage: 0.5 MG/ML
     Route: 048
     Dates: start: 20220120, end: 20220130
  26. PROMETHAZINE [Concomitant]
     Active Substance: PROMETHAZINE HYDROCHLORIDE
     Indication: COVID-19
     Dosage: 6.25 MG/ML
     Route: 048
     Dates: start: 20220120, end: 20220127
  27. CEFTRIAXONE SODIUM [Concomitant]
     Active Substance: CEFTRIAXONE SODIUM
     Indication: COVID-19
     Route: 042
     Dates: start: 20220104, end: 20220104
  28. OFLOXACIN [Concomitant]
     Active Substance: OFLOXACIN
     Indication: Prophylaxis
     Route: 047
     Dates: start: 20220417, end: 20220420
  29. PREDNISOLONE [Concomitant]
     Active Substance: PREDNISOLONE
     Route: 047
     Dates: start: 20220729, end: 20220808
  30. PREDNISOLONE [Concomitant]
     Active Substance: PREDNISOLONE
     Route: 047
     Dates: start: 20220808, end: 20220822
  31. PREDNISOLONE [Concomitant]
     Active Substance: PREDNISOLONE
     Route: 047
     Dates: start: 20220822
  32. MAXITROL [Concomitant]
     Active Substance: DEXAMETHASONE\NEOMYCIN SULFATE\POLYMYXIN B SULFATE
     Route: 047
     Dates: start: 20220822, end: 20220906

REACTIONS (1)
  - Conjunctival erosion [Recovered/Resolved]

NARRATIVE: CASE EVENT DATE: 20220131
